FAERS Safety Report 16594538 (Version 1)
Quarter: 2019Q3

REPORT INFORMATION
  Report Type: Other
  Country: US (occurrence: US)
  Receive Date: 20190718
  Receipt Date: 20190718
  Transmission Date: 20191004
  Serious: No
  Sender: FDA-Public Use
  Company Number: US-SWEDISH ORPHAN BIOVITRUM-2019US0344

PATIENT
  Age: 43 Year
  Sex: Female

DRUGS (15)
  1. NORCO [Concomitant]
     Active Substance: ACETAMINOPHEN\HYDROCODONE BITARTRATE
  2. COLCHICINE. [Concomitant]
     Active Substance: COLCHICINE
  3. CITALOPRAM [Concomitant]
     Active Substance: CITALOPRAM HYDROBROMIDE
  4. CLONAZEPAM. [Concomitant]
     Active Substance: CLONAZEPAM
  5. METFORMIN [Concomitant]
     Active Substance: METFORMIN HYDROCHLORIDE
  6. VITAMIN D [Concomitant]
     Active Substance: VITAMIN D NOS
  7. ABILIFY [Concomitant]
     Active Substance: ARIPIPRAZOLE
  8. KINERET [Suspect]
     Active Substance: ANAKINRA
     Route: 058
     Dates: start: 20190211
  9. COUMADIN [Concomitant]
     Active Substance: WARFARIN SODIUM
  10. LASIX [Concomitant]
     Active Substance: FUROSEMIDE
  11. PHENERGAN [Concomitant]
     Active Substance: PROMETHAZINE HYDROCHLORIDE
  12. NEXIUM [Concomitant]
     Active Substance: ESOMEPRAZOLE MAGNESIUM
  13. CALCIUM [Concomitant]
     Active Substance: CALCIUM
  14. TRAZODONE [Concomitant]
     Active Substance: TRAZODONE HYDROCHLORIDE
  15. PREDNISONE. [Concomitant]
     Active Substance: PREDNISONE

REACTIONS (1)
  - Nausea [Unknown]

NARRATIVE: CASE EVENT DATE: 201902
